FAERS Safety Report 6388029-8 (Version None)
Quarter: 2009Q3

REPORT INFORMATION
  Report Type: 
  Country: None (occurrence: None)
  Receive Date: 20090930
  Receipt Date: 20090812
  Transmission Date: 20100115
  Serious: Yes (Hospitalization)
  Sender: FDA-Public Use
  Company Number: 000883

PATIENT
  Sex: Male

DRUGS (3)
  1. ISOSORBIDE MONONITRATE [Suspect]
     Indication: MYOCARDIAL ISCHAEMIA
     Dosage: 50 MG, 50 MG DAILY ORAL
     Route: 048
     Dates: start: 19980101, end: 20081007
  2. INFLUENZA VACCINE (BLINDED VACCINE INJECTION) [Suspect]
     Dosage: 1 INJECTION ONCE INTRAMUSCULAR
     Route: 030
     Dates: start: 20081007, end: 20081007
  3. ENALAPRIL MALEATE [Suspect]
     Indication: HYPERTENSION
     Dosage: 5 MG, 5 MG DAILY ORAL
     Route: 048
     Dates: start: 19980101

REACTIONS (1)
  - ISCHAEMIC STROKE [None]
